FAERS Safety Report 6650343-6 (Version None)
Quarter: 2010Q1

REPORT INFORMATION
  Report Type: 
  Country: None (occurrence: None)
  Receive Date: 20100325
  Receipt Date: 20100323
  Transmission Date: 20100710
  Serious: Yes (Life-Threatening, Hospitalization)
  Sender: FDA-Public Use
  Company Number: PHHY2010GB07253

PATIENT
  Sex: Male

DRUGS (4)
  1. CLOZARIL [Suspect]
     Indication: SCHIZOPHRENIA
     Dosage: UNK
     Dates: start: 20080104
  2. CLOZARIL [Suspect]
     Dosage: 500 MG/DAY
  3. VALPROATE SODIUM [Concomitant]
     Indication: EPILEPSY
     Dosage: 1200 MG/DAY
     Route: 048
  4. VENLAFAXINE [Concomitant]
     Indication: DEPRESSION
     Dosage: 225 MG/DAY
     Route: 048

REACTIONS (3)
  - CONVULSION [None]
  - FALL [None]
  - SUICIDAL IDEATION [None]
